FAERS Safety Report 17095155 (Version 1)
Quarter: 2019Q4

REPORT INFORMATION
  Report Type: Spontaneous
  Country: FR (occurrence: FR)
  Receive Date: 20191130
  Receipt Date: 20191130
  Transmission Date: 20200122
  Serious: Yes (Other)
  Sender: FDA-Public Use
  Company Number: FR-TEVA-2019-FR-1143215

PATIENT
  Age: 62 Year
  Sex: Female
  Weight: 50 kg

DRUGS (1)
  1. CAPECITABINE. [Suspect]
     Active Substance: CAPECITABINE
     Indication: RECTAL ADENOCARCINOMA
     Dosage: 2300 MG
     Route: 048
     Dates: start: 20180620, end: 20180724

REACTIONS (1)
  - Hepatocellular injury [Recovering/Resolving]

NARRATIVE: CASE EVENT DATE: 20180724
